FAERS Safety Report 8809764 (Version 2)
Quarter: 2012Q4

REPORT INFORMATION
  Report Type: 
  Country: US (occurrence: US)
  Receive Date: 20120926
  Receipt Date: 20121004
  Transmission Date: 20130627
  Serious: Yes (Disabling, Other)
  Sender: FDA-Public Use
  Company Number: US-ABBOTT-12P-163-0982011-00

PATIENT
  Age: 40 Year
  Sex: Female

DRUGS (16)
  1. DEPAKOTE [Suspect]
     Indication: CONVULSION
     Dosage: 2 at bedtime
  2. HEPARIN [Concomitant]
     Indication: PRODUCT USED FOR UNKNOWN INDICATION
     Route: 050
  3. BICARBONATE [Concomitant]
     Indication: PRODUCT USED FOR UNKNOWN INDICATION
     Route: 050
  4. LIDOCAINE [Concomitant]
     Indication: PRODUCT USED FOR UNKNOWN INDICATION
     Route: 050
  5. FLEXERIL [Concomitant]
     Indication: BLADDER SPASM
  6. XANAX [Concomitant]
     Indication: ANXIETY
  7. ZOFRAN [Concomitant]
     Indication: NAUSEA
  8. VALIUM [Concomitant]
     Indication: VULVOVAGINAL PAIN
  9. PHENOBARBITAL [Concomitant]
     Indication: CONVULSION
     Dosage: 1 at bedtime
  10. BACTRIM DS [Concomitant]
     Indication: INFECTION
  11. MACRODANTIN [Concomitant]
     Indication: INFECTION
  12. URELLE [Concomitant]
     Indication: VULVOVAGINAL BURNING SENSATION
  13. VIVELLE [Concomitant]
     Indication: HORMONE REPLACEMENT THERAPY
     Route: 062
  14. LIDOCAINE JELLY [Concomitant]
     Indication: HYPOAESTHESIA
     Dosage: 2% apply to vaginal 4 times a day
  15. LUNESTA [Concomitant]
     Indication: INSOMNIA
  16. NORCO [Concomitant]
     Indication: PAIN

REACTIONS (18)
  - Endometriosis [Unknown]
  - Cystitis [Not Recovered/Not Resolved]
  - Cystitis interstitial [Unknown]
  - Bladder operation [Unknown]
  - Device malfunction [Unknown]
  - Disability [Unknown]
  - Bladder operation [Unknown]
  - Staphylococcal infection [Unknown]
  - Pyrexia [Unknown]
  - Influenza like illness [Unknown]
  - Vision blurred [Unknown]
  - Ageusia [Unknown]
  - Amnesia [Unknown]
  - Convulsion [Unknown]
  - Candida sepsis [Unknown]
  - Antiphospholipid antibodies positive [Unknown]
  - Tremor [Unknown]
  - Gastrointestinal disorder [Unknown]
